FAERS Safety Report 13386711 (Version 1)
Quarter: 2017Q1

REPORT INFORMATION
  Report Type: Spontaneous
  Country: US (occurrence: US)
  Receive Date: 20170330
  Receipt Date: 20170330
  Transmission Date: 20170429
  Serious: No
  Sender: FDA-Public Use
  Company Number: US-PFIZER INC-2017139376

PATIENT
  Age: 84 Year
  Sex: Female
  Weight: 59 kg

DRUGS (4)
  1. ATIVAN [Concomitant]
     Active Substance: LORAZEPAM
     Indication: BLOOD PRESSURE ABNORMAL
     Dosage: 0.5 MG, 2X/DAY AS NEEDED
  2. PREMARIN [Suspect]
     Active Substance: ESTROGENS, CONJUGATED
     Indication: ATROPHIC VULVOVAGINITIS
     Dosage: UNK, SINGLE
     Dates: start: 20170324
  3. NORVASC [Concomitant]
     Active Substance: AMLODIPINE BESYLATE
     Indication: BLOOD PRESSURE ABNORMAL
     Dosage: 7.5 MG (5MG AT NIGHT AND 2.5MG AT MORNING), DAILY
     Route: 048
  4. ATENOLOL. [Concomitant]
     Active Substance: ATENOLOL
     Indication: BLOOD PRESSURE ABNORMAL
     Dosage: 25 MG, 2X/DAY
     Route: 048

REACTIONS (4)
  - Paraesthesia [Unknown]
  - Wrong technique in product usage process [Unknown]
  - Vulvovaginal pain [Recovering/Resolving]
  - Vulvovaginal burning sensation [Recovering/Resolving]
